FAERS Safety Report 6184062-X (Version None)
Quarter: 2009Q2

REPORT INFORMATION
  Report Type: 
  Country: None (occurrence: None)
  Receive Date: 20090504
  Receipt Date: 20090424
  Transmission Date: 20091009
  Serious: Yes (Hospitalization)
  Sender: FDA-Public Use
  Company Number: 200914806

PATIENT
  Sex: Male
  Weight: 5.5 kg

DRUGS (3)
  1. CARIMUNE [Suspect]
     Indication: BRUTON'S AGAMMAGLOBULINAEMIA
     Dosage: (545 MG/KG ONCE A MONTH INTRAVENOUS))
     Route: 042
     Dates: start: 20070327, end: 20070619
  2. GRANULOCYTE COLONY STIMULATING FACTOR (G-CSF) (GRANULOCYTE COLONY STIM [Concomitant]
  3. ANTIBIOTICS () [Concomitant]

REACTIONS (8)
  - BRONCHIOLITIS [None]
  - DRUG INEFFECTIVE [None]
  - IRRITABILITY [None]
  - NEUTROPENIA [None]
  - OTITIS MEDIA [None]
  - PNEUMONIA [None]
  - PYREXIA [None]
  - UPPER RESPIRATORY TRACT INFECTION [None]
